FAERS Safety Report 24986006 (Version 1)
Quarter: 2025Q1

REPORT INFORMATION
  Report Type: Spontaneous
  Country: CA (occurrence: CA)
  Receive Date: 20250219
  Receipt Date: 20250219
  Transmission Date: 20250408
  Serious: Yes (Other)
  Sender: ROCHE
  Company Number: CA-ROCHE-10000209825

PATIENT
  Age: 67 Year
  Sex: Male

DRUGS (2)
  1. OMALIZUMAB [Suspect]
     Active Substance: OMALIZUMAB
     Indication: Asthma
     Dosage: 225 MG, BIW
     Route: 050
  2. OMALIZUMAB [Suspect]
     Active Substance: OMALIZUMAB
     Dosage: 225 MG, BIW
     Route: 050

REACTIONS (5)
  - Asthma [Recovered/Resolved]
  - Bronchitis [Recovered/Resolved]
  - Myalgia [Recovered/Resolved]
  - Pulmonary embolism [Recovered/Resolved]
  - Stress [Recovered/Resolved]
